FAERS Safety Report 15256792 (Version 2)
Quarter: 2018Q3

REPORT INFORMATION
  Report Type: Report from Study
  Country: CA (occurrence: CA)
  Receive Date: 20180808
  Receipt Date: 20180831
  Transmission Date: 20181010
  Serious: Yes (Other)
  Sender: FDA-Public Use
  Company Number: CA-JNJFOC-20180803758

PATIENT
  Age: 31 Year
  Sex: Female
  Weight: 58.51 kg

DRUGS (1)
  1. REMICADE [Suspect]
     Active Substance: INFLIXIMAB
     Indication: COLITIS ULCERATIVE
     Dosage: STRENGTH = 100 MG, 10 MG/KG
     Route: 042
     Dates: start: 20140410, end: 20180827

REACTIONS (4)
  - Frequent bowel movements [Unknown]
  - Haematochezia [Unknown]
  - Colectomy [Unknown]
  - General physical health deterioration [Unknown]

NARRATIVE: CASE EVENT DATE: 20180801
